FAERS Safety Report 24184938 (Version 1)
Quarter: 2024Q3

REPORT INFORMATION
  Report Type: Spontaneous
  Country: US (occurrence: US)
  Receive Date: 20240807
  Receipt Date: 20240807
  Transmission Date: 20241017
  Serious: Yes (Life-Threatening, Hospitalization)
  Sender: GUERBET
  Company Number: US-GUERBET / LLC-US-20240120

PATIENT
  Age: 57 Year
  Sex: Female

DRUGS (1)
  1. LIPIODOL [Suspect]
     Active Substance: ETHIODIZED OIL
     Indication: Lymphangiogram

REACTIONS (1)
  - Pulmonary embolism [Recovered/Resolved]
